FAERS Safety Report 5068311-7 (Version None)
Quarter: 2006Q3

REPORT INFORMATION
  Report Type: 
  Country: None (occurrence: None)
  Receive Date: 20060802
  Receipt Date: 20050727
  Transmission Date: 20061208
  Serious: No
  Sender: FDA-Public Use
  Company Number: US-BRISTOL-MYERS SQUIBB COMPANY-13053616

PATIENT
  Age: 76 Year
  Sex: Female
  Weight: 66 kg

DRUGS (5)
  1. COUMADIN [Suspect]
     Indication: HEART RATE IRREGULAR
     Dosage: TAKEN AS ONE AND 1/2 2 MG TABLETS
     Route: 048
  2. AVAPRO [Concomitant]
     Dosage: 3-4 YEARS
  3. OXYBUTYNIN [Concomitant]
  4. POTASSIUM [Concomitant]
  5. PROTONIX [Concomitant]

REACTIONS (1)
  - INTERNATIONAL NORMALISED RATIO DECREASED [None]
